FAERS Safety Report 20744210 (Version 1)
Quarter: 2022Q2

REPORT INFORMATION
  Report Type: Spontaneous
  Country: GB (occurrence: None)
  Receive Date: 20220425
  Receipt Date: 20220425
  Transmission Date: 20220721
  Serious: Yes (Hospitalization)
  Sender: FDA-Public Use
  Company Number: None

PATIENT
  Age: 32 Year
  Sex: Male

DRUGS (10)
  1. CLINDAMYCIN [Suspect]
     Active Substance: CLINDAMYCIN
     Dates: start: 20220126, end: 20220131
  2. CLARITHROMYCIN [Suspect]
     Active Substance: CLARITHROMYCIN
     Dates: start: 20220114, end: 20220119
  3. ACITRETIN [Suspect]
     Active Substance: ACITRETIN
     Indication: Erythrodermic psoriasis
     Dates: start: 20220129, end: 20220202
  4. ACITRETIN [Suspect]
     Active Substance: ACITRETIN
     Indication: Erythrodermic psoriasis
     Dates: start: 20220202, end: 20220209
  5. TEICOPLANIN [Suspect]
     Active Substance: TEICOPLANIN
     Dates: start: 20220120, end: 20220122
  6. TEICOPLANIN [Suspect]
     Active Substance: TEICOPLANIN
     Dates: start: 20220123, end: 20220207
  7. ENSTILAR [Concomitant]
     Active Substance: BETAMETHASONE DIPROPIONATE\CALCIPOTRIENE HYDRATE
     Dosage: 50MICROGRAMS/G / 0.5 MG/G
  8. BETAMETHASONE DIPROPIONATE [Concomitant]
     Active Substance: BETAMETHASONE DIPROPIONATE
  9. NAPROXEN [Concomitant]
     Active Substance: NAPROXEN
  10. DERMOL [Concomitant]
     Active Substance: BENZALKONIUM CHLORIDE\CHLORHEXIDINE HYDROCHLORIDE\ISOPROPYL MYRISTATE\PARAFFIN

REACTIONS (2)
  - Condition aggravated [Unknown]
  - Liver function test abnormal [Recovering/Resolving]

NARRATIVE: CASE EVENT DATE: 20220120
